FAERS Safety Report 4847438-6 (Version None)
Quarter: 2005Q4

REPORT INFORMATION
  Report Type: 
  Country: None (occurrence: None)
  Receive Date: 20051202
  Receipt Date: 20051128
  Transmission Date: 20060501
  Serious: Yes (Hospitalization)
  Sender: FDA-Public Use
  Company Number: CFX20050027

PATIENT
  Age: 80 Year
  Sex: Female

DRUGS (5)
  1. CIPROFLOXACIN [Suspect]
     Indication: URINARY TRACT INFECTION
     Dosage: PO
     Dates: start: 20040101, end: 20040101
  2. ENALAPRIL MALEATE AND HYDROCHLOROTHIAZIDE [Concomitant]
  3. CARTEOLOL HCL EYE DROPS [Concomitant]
  4. PREDNISONE [Concomitant]
  5. RANITIDINE [Concomitant]

REACTIONS (5)
  - ACUTE GENERALISED EXANTHEMATOUS PUSTULOSIS [None]
  - ERYTHEMA MULTIFORME [None]
  - NEUTROPHIL COUNT INCREASED [None]
  - SEPSIS [None]
  - SKIN OEDEMA [None]
